FAERS Safety Report 20452034 (Version 1)
Quarter: 2022Q1

REPORT INFORMATION
  Report Type: Report from Study
  Country: CA (occurrence: CA)
  Receive Date: 20220209
  Receipt Date: 20220209
  Transmission Date: 20220423
  Serious: Yes (Hospitalization)
  Sender: FDA-Public Use
  Company Number: CA-ABBVIE-21K-028-4175770-00

PATIENT
  Sex: Female

DRUGS (5)
  1. RINVOQ [Suspect]
     Active Substance: UPADACITINIB
     Indication: Rheumatoid arthritis
     Route: 048
     Dates: start: 20201221, end: 20211109
  2. METHOTREXATE [Suspect]
     Active Substance: METHOTREXATE
     Indication: Product used for unknown indication
     Route: 065
  3. METHOTREXATE [Suspect]
     Active Substance: METHOTREXATE
     Route: 065
  4. COVID-19 VACCINE [Concomitant]
     Indication: COVID-19 immunisation
     Route: 030
     Dates: start: 2021, end: 2021
  5. COVID-19 VACCINE [Concomitant]
     Route: 030
     Dates: start: 2021, end: 2021

REACTIONS (11)
  - Kidney infection [Recovered/Resolved]
  - Pain [Not Recovered/Not Resolved]
  - Muscle spasms [Unknown]
  - Arthritis [Not Recovered/Not Resolved]
  - Gastrointestinal bacterial infection [Unknown]
  - Epistaxis [Unknown]
  - Feeding disorder [Unknown]
  - Dehydration [Unknown]
  - Food intolerance [Unknown]
  - Abdominal pain [Unknown]
  - Nausea [Unknown]

NARRATIVE: CASE EVENT DATE: 20210101
